FAERS Safety Report 18822979 (Version 1)
Quarter: 2021Q1

REPORT INFORMATION
  Report Type: Spontaneous
  Country: DE (occurrence: DE)
  Receive Date: 20210202
  Receipt Date: 20210202
  Transmission Date: 20210419
  Serious: No
  Sender: FDA-Public Use
  Company Number: DE-LUPIN PHARMACEUTICALS INC.-2021-00922

PATIENT
  Age: 42 Year
  Sex: Male

DRUGS (6)
  1. PLASMA [Concomitant]
     Active Substance: HUMAN PLASMA
     Dosage: ONE CYCLE OF PLASMA EXCHANGE (PLEX)
     Route: 065
  2. RIBAVIRIN. [Suspect]
     Active Substance: RIBAVIRIN
     Indication: HEPATITIS E
     Dosage: 1 GRAM, QD
     Route: 065
  3. IMMUNE GLOBULIN (IMMUNOGLOBULINS NOS) [Suspect]
     Active Substance: IMMUNE GLOBULIN NOS
     Indication: HEPATITIS E
     Dosage: 0.35 GRAM PER KILOGRAM, QD (ONE CYCLE)
     Route: 042
  4. PLASMA [Concomitant]
     Active Substance: HUMAN PLASMA
     Indication: PLASMAPHERESIS
     Dosage: TWO CYCLES OF PLASMA EXCHANGE (PLEX)
     Route: 065
  5. METHYLPREDNISOLONE. [Suspect]
     Active Substance: METHYLPREDNISOLONE
     Indication: HEPATITIS E
     Dosage: UNK
     Route: 065
  6. RITUXIMAB. [Suspect]
     Active Substance: RITUXIMAB
     Indication: HEPATITIS E
     Dosage: 1 GRAM, QD (RECEIVED 5 COURSES)
     Route: 065

REACTIONS (1)
  - Off label use [Unknown]
